FAERS Safety Report 24803501 (Version 1)
Quarter: 2025Q1

REPORT INFORMATION
  Report Type: Spontaneous
  Country: US (occurrence: US)
  Receive Date: 20250103
  Receipt Date: 20250103
  Transmission Date: 20250409
  Serious: No
  Sender: CSL BEHRING
  Company Number: US-BEH-2024189284

PATIENT
  Sex: Female
  Weight: 56.689 kg

DRUGS (24)
  1. HIZENTRA [Suspect]
     Active Substance: HUMAN IMMUNOGLOBULIN G
     Indication: Immunodeficiency common variable
     Route: 065
     Dates: start: 20241125
  2. ACETAMINOPHEN [Concomitant]
     Active Substance: ACETAMINOPHEN
  3. DIPHENHYDRAMINE HYDROCHLORIDE [Concomitant]
     Active Substance: DIPHENHYDRAMINE HYDROCHLORIDE
  4. LIDOCAINE [Concomitant]
     Active Substance: LIDOCAINE
  5. TRELEGY ELLIPTA [Concomitant]
     Active Substance: FLUTICASONE FUROATE\UMECLIDINIUM BROMIDE\VILANTEROL TRIFENATATE
  6. LOSARTAN [Concomitant]
     Active Substance: LOSARTAN
  7. ALBUTEROL [Concomitant]
     Active Substance: ALBUTEROL
  8. PREGABALIN [Concomitant]
     Active Substance: PREGABALIN
  9. PANTOPRAZOLE [Concomitant]
     Active Substance: PANTOPRAZOLE
  10. METOPROLOL [Concomitant]
     Active Substance: METOPROLOL
  11. LACTASE [Concomitant]
     Active Substance: LACTASE
  12. ASPIRIN [Concomitant]
     Active Substance: ASPIRIN
  13. ROPINIROLE [Concomitant]
     Active Substance: ROPINIROLE
  14. OXYGEN [Concomitant]
     Active Substance: OXYGEN
  15. CELLCEPT [Concomitant]
     Active Substance: MYCOPHENOLATE MOFETIL
  16. ATORVASTATIN [Concomitant]
     Active Substance: ATORVASTATIN
  17. PLAQUENIL [Concomitant]
     Active Substance: HYDROXYCHLOROQUINE SULFATE
  18. NORVASC [Concomitant]
     Active Substance: AMLODIPINE BESYLATE
  19. ATIVAN [Concomitant]
     Active Substance: LORAZEPAM
  20. OXYCODONE [Concomitant]
     Active Substance: OXYCODONE
  21. HYDROCODONE [Concomitant]
     Active Substance: HYDROCODONE
  22. LORAZEPAM [Concomitant]
     Active Substance: LORAZEPAM
  23. PHENYLEPHRINE [Concomitant]
     Active Substance: PHENYLEPHRINE
  24. HYDROCODONE BITARTRATE [Concomitant]
     Active Substance: HYDROCODONE BITARTRATE

REACTIONS (1)
  - Device leakage [Unknown]
